FAERS Safety Report 7242613-8 (Version None)
Quarter: 2011Q1

REPORT INFORMATION
  Report Type: 
  Country: None (occurrence: None)
  Receive Date: 20110125
  Receipt Date: 20110118
  Transmission Date: 20110831
  Serious: Yes (Other)
  Sender: FDA-Public Use
  Company Number: FR-PFIZER INC-2010142538

PATIENT
  Age: 30 Year
  Sex: Male
  Weight: 64 kg

DRUGS (2)
  1. SALAZOPYRINE [Suspect]
     Indication: ANKYLOSING SPONDYLITIS
  2. SALAZOPYRINE [Suspect]
     Indication: BACK PAIN
     Dosage: 500 MG, 2X/DAY
     Dates: start: 20070831

REACTIONS (4)
  - GASTROINTESTINAL ANGIODYSPLASIA [None]
  - GASTRIC ULCER HELICOBACTER [None]
  - ANAEMIA [None]
  - HAEMORRHAGE [None]
